FAERS Safety Report 5370141-3 (Version None)
Quarter: 2007Q2

REPORT INFORMATION
  Report Type: 
  Country: None (occurrence: None)
  Receive Date: 20070614
  Receipt Date: 20070508
  Transmission Date: 20071010
  Serious: Yes (Other)
  Sender: FDA-Public Use
  Company Number: BDI-009511

PATIENT
  Age: 54 Year
  Sex: Male

DRUGS (3)
  1. MULTIHANCE [Suspect]
     Indication: FALL
     Dosage: 15 ML ONCE IV
     Route: 042
     Dates: start: 20070507, end: 20070507
  2. MULTIHANCE [Suspect]
     Indication: HEADACHE
     Dosage: 15 ML ONCE IV
     Route: 042
     Dates: start: 20070507, end: 20070507
  3. MULTIHANCE [Suspect]
     Indication: NUCLEAR MAGNETIC RESONANCE IMAGING BRAIN
     Dosage: 15 ML ONCE IV
     Route: 042
     Dates: start: 20070507, end: 20070507

REACTIONS (7)
  - CONVULSION [None]
  - EYE ROLLING [None]
  - HYPOTENSION [None]
  - NAUSEA [None]
  - OXYGEN SATURATION DECREASED [None]
  - TACHYCARDIA [None]
  - VOMITING [None]
